FAERS Safety Report 19908364 (Version 2)
Quarter: 2022Q1

REPORT INFORMATION
  Report Type: Spontaneous
  Country: US (occurrence: US)
  Receive Date: 20211002
  Receipt Date: 20220203
  Transmission Date: 20220423
  Serious: No
  Sender: FDA-Public Use
  Company Number: US-GLENMARK PHARMACEUTICALS-2021GMK067172

PATIENT

DRUGS (2)
  1. ESTRADIOL [Suspect]
     Active Substance: ESTRADIOL
     Indication: Product used for unknown indication
     Dosage: UNK (DID NOT HAVING DISSOLVING ISSUE)
     Route: 067
     Dates: start: 2018
  2. ESTRADIOL [Suspect]
     Active Substance: ESTRADIOL
     Dosage: UNK, TWICE A WEEK (NOT DISSOLVING)
     Route: 067
     Dates: start: 2021

REACTIONS (5)
  - Inappropriate schedule of product administration [Unknown]
  - Product dose omission in error [Unknown]
  - Product solubility abnormal [Unknown]
  - Drug ineffective [Unknown]
  - Product quality issue [Unknown]
